FAERS Safety Report 18002669 (Version 1)
Quarter: 2020Q3

REPORT INFORMATION
  Report Type: Spontaneous
  Country: US (occurrence: US)
  Receive Date: 20200709
  Receipt Date: 20200709
  Transmission Date: 20201103
  Serious: No
  Sender: FDA-Public Use
  Company Number: US-ASTELLAS-2019US031456

PATIENT
  Age: 87 Year
  Sex: Female

DRUGS (2)
  1. MYRBETRIQ [Suspect]
     Active Substance: MIRABEGRON
     Indication: POLLAKIURIA
     Dosage: 25 MG,  (ONE PER EVENING APRXIMATELY AT 8PM)
     Route: 048
     Dates: start: 20190720
  2. MYRBETRIQ [Suspect]
     Active Substance: MIRABEGRON
     Dosage: 50 MG, ONCE DAILY (ONE PER EVENING APRXIMATELY AT 8PM)
     Route: 048
     Dates: start: 20190814

REACTIONS (1)
  - Therapeutic product effect incomplete [Recovering/Resolving]
